FAERS Safety Report 7368018-7 (Version None)
Quarter: 2011Q1

REPORT INFORMATION
  Report Type: 
  Country: None (occurrence: None)
  Receive Date: 20110323
  Receipt Date: 20110310
  Transmission Date: 20110831
  Serious: Yes (Hospitalization)
  Sender: FDA-Public Use
  Company Number: IT-BAYER-2011-019170

PATIENT
  Sex: Male

DRUGS (1)
  1. ULTRAVIST 150 [Suspect]
     Indication: COMPUTERISED TOMOGRAM
     Dosage: 110 ML, ONCE
     Route: 042
     Dates: start: 20110228, end: 20110228

REACTIONS (3)
  - URTICARIA [None]
  - LIP OEDEMA [None]
  - TREMOR [None]
